FAERS Safety Report 7804640-9 (Version None)
Quarter: 2011Q4

REPORT INFORMATION
  Report Type: 
  Country: None (occurrence: None)
  Receive Date: 20111010
  Receipt Date: 20111006
  Transmission Date: 20120403
  Serious: Yes (Other)
  Sender: FDA-Public Use
  Company Number: DE-PFIZER INC-2011180746

PATIENT
  Age: 49 Year
  Sex: Male

DRUGS (11)
  1. ZOPICLONE [Suspect]
     Dosage: 7.5
  2. SEROQUEL [Suspect]
     Dosage: 800
  3. VENLAFAXINE HCL [Suspect]
     Dosage: 75
  4. VENLAFAXINE HCL [Suspect]
     Dosage: 225 MG
  5. SEROQUEL [Suspect]
     Dosage: 1000 MG, 1X/DAY
  6. PROMETHAZINE HCL [Concomitant]
  7. LORAZEPAM [Suspect]
     Dosage: 1 MG, 3X/DAY
     Dates: start: 20110101
  8. ZOPICLONE [Suspect]
     Dosage: 10
  9. LORAZEPAM [Suspect]
     Dosage: 3 OR 4 MG
  10. INDOMETHACIN [Concomitant]
     Dosage: 100 MG, 3X/DAY
  11. SEROQUEL [Suspect]
     Dosage: 500 MG

REACTIONS (11)
  - COLD SWEAT [None]
  - ARTHRALGIA [None]
  - HEADACHE [None]
  - CONSTIPATION [None]
  - SKIN FISSURES [None]
  - DRUG DEPENDENCE [None]
  - WITHDRAWAL SYNDROME [None]
  - NIGHTMARE [None]
  - AMNESIA [None]
  - DIZZINESS [None]
  - INSOMNIA [None]
